FAERS Safety Report 14753719 (Version 2)
Quarter: 2019Q2

REPORT INFORMATION
  Report Type: Spontaneous
  Country: GB (occurrence: GB)
  Receive Date: 20180412
  Receipt Date: 20190621
  Transmission Date: 20190711
  Serious: Yes (Life-Threatening, Hospitalization, Other)
  Sender: FDA-Public Use
  Company Number: GB-INDIVIOR LIMITED-INDV-110059-2018

PATIENT
  Age: 35 Year
  Sex: Male

DRUGS (3)
  1. VENLAFAXINE [Concomitant]
     Active Substance: VENLAFAXINE HYDROCHLORIDE
     Indication: PRODUCT USED FOR UNKNOWN INDICATION
     Dosage: UNK
     Route: 065
  2. HEROIN [Suspect]
     Active Substance: DIAMORPHINE
     Indication: PRODUCT USED FOR UNKNOWN INDICATION
     Dosage: UNK
     Route: 065
  3. SUBOXONE [Suspect]
     Active Substance: BUPRENORPHINE HYDROCHLORIDE\NALOXONE HYDROCHLORIDE
     Indication: PRODUCT USED FOR UNKNOWN INDICATION
     Dosage: UNK
     Route: 065

REACTIONS (11)
  - Oesophagitis [Unknown]
  - Pneumoperitoneum [Unknown]
  - Intra-abdominal haematoma [Unknown]
  - Gastric haemorrhage [Unknown]
  - Altered state of consciousness [Unknown]
  - Drug abuse [Unknown]
  - Gastric perforation [Unknown]
  - Procedural pain [Unknown]
  - Respiratory arrest [Unknown]
  - Toxicity to various agents [Unknown]
  - Overdose [Unknown]
